FAERS Safety Report 22255411 (Version 2)
Quarter: 2023Q2

REPORT INFORMATION
  Report Type: Spontaneous
  Country: CO (occurrence: CO)
  Receive Date: 20230426
  Receipt Date: 20230601
  Transmission Date: 20230721
  Serious: Yes (Hospitalization, Other)
  Sender: FDA-Public Use
  Company Number: CO-ORG100014127-2023000358

PATIENT
  Age: 26 Year
  Sex: Male
  Weight: 71 kg

DRUGS (6)
  1. METYRAPONE [Suspect]
     Active Substance: METYRAPONE
     Indication: Cushing^s syndrome
     Dosage: 250MG EVERY 8 HOURS
     Route: 048
     Dates: start: 20211121
  2. AMLODIPINE BESYLATE [Concomitant]
     Active Substance: AMLODIPINE BESYLATE
     Indication: Product used for unknown indication
  3. clonidine tablet 0.150mg [Concomitant]
     Indication: Product used for unknown indication
     Dosage: 0.150MG EVERY 24 HOURS ORALLY
  4. FUROSEMIDE SODIUM [Concomitant]
     Active Substance: FUROSEMIDE SODIUM
     Indication: Product used for unknown indication
     Dosage: 40 MG EVERY 24 HOURS ORALLY
  5. valsartan/amlodipine 160mg/10mg [Concomitant]
     Indication: Product used for unknown indication
     Dosage: 160MG/10MG  EVERY 24 HOURS ORALLY
  6. bisoprolol 10mg tablet [Concomitant]
     Indication: Product used for unknown indication
     Dosage: 10MG EVERY 24 HOURS ORALLY

REACTIONS (5)
  - Pneumonia bacterial [Recovered/Resolved]
  - Haemoptysis [Recovered/Resolved]
  - Balance disorder [Unknown]
  - Fall [Unknown]
  - Limb injury [Not Recovered/Not Resolved]

NARRATIVE: CASE EVENT DATE: 20230324
